FAERS Safety Report 4953801-5 (Version None)
Quarter: 2006Q1

REPORT INFORMATION
  Report Type: 
  Country: None (occurrence: None)
  Receive Date: 20060324
  Receipt Date: 20060324
  Transmission Date: 20060701
  Serious: Yes (Other)
  Sender: FDA-Public Use
  Company Number: None

PATIENT
  Sex: Male

DRUGS (1)
  1. ADDERALL 10 [Suspect]
     Indication: ATTENTION DEFICIT/HYPERACTIVITY DISORDER
     Dosage: 10 MG ONCE A DAY

REACTIONS (8)
  - ABNORMAL BEHAVIOUR [None]
  - DRUG THERAPY CHANGED [None]
  - FEELING GUILTY [None]
  - HALLUCINATIONS, MIXED [None]
  - HEADACHE [None]
  - MIGRAINE [None]
  - NOCTIPHOBIA [None]
  - PHARMACEUTICAL PRODUCT COMPLAINT [None]
